FAERS Safety Report 11004299 (Version 1)
Quarter: 2015Q2

REPORT INFORMATION
  Report Type: Spontaneous
  Country: DE (occurrence: None)
  Receive Date: 20150407
  Receipt Date: 20150407
  Transmission Date: 20150821
  Serious: Yes (Hospitalization, Other)
  Sender: FDA-Public Use
  Company Number: KAD201503-000700

PATIENT
  Age: 62 Year
  Sex: Female

DRUGS (8)
  1. SPIRONOLACTONE. [Concomitant]
     Active Substance: SPIRONOLACTONE
  2. FUROSEMIDE. [Concomitant]
     Active Substance: FUROSEMIDE
  3. VIEKIRAX [Suspect]
     Active Substance: OMBITASVIR\PARITAPREVIR\RITONAVIR
     Indication: CHRONIC HEPATITIS C
     Dates: start: 20150219
  4. LEVOTHYROXINE (LEVOTHYROXINE SODIUM) [Concomitant]
  5. KEPPRA [Concomitant]
     Active Substance: LEVETIRACETAM
  6. RIBAVIRIN (RIBAVIRIN) [Suspect]
     Active Substance: RIBAVIRIN
     Indication: HEPATITIS C
  7. EXVIERA [Suspect]
     Active Substance: DASABUVIR
     Indication: CHRONIC HEPATITIS C
     Dates: start: 20150219
  8. ZOPICLONE [Concomitant]
     Active Substance: ZOPICLONE

REACTIONS (2)
  - Acute kidney injury [None]
  - Hepatorenal syndrome [None]

NARRATIVE: CASE EVENT DATE: 201503
